FAERS Safety Report 25150597 (Version 1)
Quarter: 2025Q2

REPORT INFORMATION
  Report Type: Spontaneous
  Country: DE (occurrence: DE)
  Receive Date: 20250402
  Receipt Date: 20250402
  Transmission Date: 20250717
  Serious: Yes (Hospitalization)
  Sender: FRESENIUS KABI
  Company Number: DE-AMK-285995

PATIENT
  Age: 72 Year
  Sex: Female
  Weight: 48 kg

DRUGS (5)
  1. TYENNE [Suspect]
     Active Substance: TOCILIZUMAB-AAZG
     Indication: Rheumatoid arthritis
     Dates: start: 20250203
  2. TYENNE [Suspect]
     Active Substance: TOCILIZUMAB-AAZG
     Indication: Cytokine release syndrome
  3. TYENNE [Suspect]
     Active Substance: TOCILIZUMAB-AAZG
     Indication: Juvenile idiopathic arthritis
  4. TYENNE [Suspect]
     Active Substance: TOCILIZUMAB-AAZG
     Indication: COVID-19
  5. TYENNE [Suspect]
     Active Substance: TOCILIZUMAB-AAZG
     Indication: Giant cell arteritis

REACTIONS (2)
  - Labile blood pressure [Recovered/Resolved]
  - Presyncope [Recovered/Resolved]

NARRATIVE: CASE EVENT DATE: 20250203
